FAERS Safety Report 24747612 (Version 1)
Quarter: 2024Q4

REPORT INFORMATION
  Report Type: Report from Study
  Country: GR (occurrence: GR)
  Receive Date: 20241218
  Receipt Date: 20241218
  Transmission Date: 20250114
  Serious: Yes (Hospitalization)
  Sender: EMD SERONO INC
  Company Number: GR-Merck Healthcare KGaA-2024064677

PATIENT
  Age: 52 Year
  Sex: Female

DRUGS (1)
  1. REBIF [Suspect]
     Active Substance: INTERFERON BETA-1A
     Indication: Multiple sclerosis
     Dosage: FORM OF ADMIN: CARTRIDGE
     Dates: start: 20230828

REACTIONS (4)
  - Musculoskeletal discomfort [Unknown]
  - Pain in extremity [Unknown]
  - Neck pain [Unknown]
  - Musculoskeletal stiffness [Unknown]
